FAERS Safety Report 4785350-1 (Version None)
Quarter: 2005Q3

REPORT INFORMATION
  Report Type: 
  Country: None (occurrence: None)
  Receive Date: 20050929
  Receipt Date: 20050916
  Transmission Date: 20060218
  Serious: Yes (Hospitalization)
  Sender: FDA-Public Use
  Company Number: 2005129699

PATIENT
  Age: 69 Year
  Sex: Male

DRUGS (13)
  1. ATARAX [Suspect]
     Indication: ILL-DEFINED DISORDER
     Dosage: ORAL
     Route: 048
     Dates: start: 20300220, end: 20030306
  2. MEPROBAMTE [Concomitant]
  3. VERAPAMIL HCL [Concomitant]
  4. FLUTICASONE PROPIONATE (FLUTICASONE PROPRIONATE) [Concomitant]
  5. CITALOPRAM HYROBRMIDE (CITALOPRAM) [Concomitant]
  6. RIVASTIGMINE TARTRATE [Concomitant]
  7. SALMETEROL XINAFOATE (SALMETEROL XINAFOATE) [Concomitant]
  8. CAPTEA (CAPTOPRIL, HYDROCHLOROTHIAZIDE) [Concomitant]
  9. SERENOA REPENS (SERENOA REPENS) [Concomitant]
  10. PRAZOSIN HCL [Concomitant]
  11. MACROGOL (MACROGOL) [Concomitant]
  12. ACETYLSALICYLATE LYSINE (ACETYLSALICYLATE LYSINE) [Concomitant]
  13. POTASSIUM CHLORIDE [Concomitant]

REACTIONS (5)
  - AGITATION [None]
  - ERYTHEMA [None]
  - MYOCLONUS [None]
  - PAIN IN EXTREMITY [None]
  - TREMOR [None]
